FAERS Safety Report 9286225 (Version 1)
Quarter: 2013Q2

REPORT INFORMATION
  Report Type: Spontaneous
  Country: US (occurrence: None)
  Receive Date: 20130510
  Receipt Date: 20130510
  Transmission Date: 20140414
  Serious: Yes (Other)
  Sender: FDA-Public Use
  Company Number: None

PATIENT
  Age: 57 Year
  Sex: Female
  Weight: 58.97 kg

DRUGS (1)
  1. LEVOTHYROXINE [Suspect]

REACTIONS (5)
  - Drug intolerance [None]
  - Tinnitus [None]
  - Headache [None]
  - Vision blurred [None]
  - Photophobia [None]
